FAERS Safety Report 6945898-8 (Version None)
Quarter: 2010Q3

REPORT INFORMATION
  Report Type: 
  Country: None (occurrence: None)
  Receive Date: 20100824
  Receipt Date: 20100809
  Transmission Date: 20110219
  Serious: Yes (Hospitalization)
  Sender: FDA-Public Use
  Company Number: 2010-1404

PATIENT
  Age: 65 Year
  Sex: Female

DRUGS (12)
  1. APO-GO AMPOULES (APO-GO) (APOMORPHINE HYDROCHLORIDE) (APOMORPHINE HYDR [Suspect]
     Indication: PARKINSON'S DISEASE
     Dosage: (3.6 MG,1 IN 1 HR),SUBCUTANEOUS
     Route: 058
     Dates: end: 20100601
  2. CITALOPRAM HYDROBROMIDE [Concomitant]
  3. AMANTADINE HCL [Concomitant]
  4. GABAPENTIN [Concomitant]
  5. RIVASTIGMINE TARTRATE [Concomitant]
  6. DUROGESIC DTRANS (FENTANYL) [Concomitant]
  7. LEVOTHYROXINE SODIUM [Concomitant]
  8. STALEVO (STALEVO) [Concomitant]
  9. MIRTAZAPINE [Concomitant]
  10. SIMVASTATIN [Concomitant]
  11. ASPIRIN [Concomitant]
  12. ALENDRONATE SODIUM [Concomitant]

REACTIONS (6)
  - CELLULITIS [None]
  - DERMATITIS ALLERGIC [None]
  - HAEMOGLOBIN DECREASED [None]
  - INFUSION SITE INFLAMMATION [None]
  - INFUSION SITE PAIN [None]
  - NODULE [None]
